FAERS Safety Report 6590684-4 (Version None)
Quarter: 2010Q1

REPORT INFORMATION
  Report Type: 
  Country: None (occurrence: None)
  Receive Date: 20100219
  Receipt Date: 20100215
  Transmission Date: 20100710
  Serious: Yes (Hospitalization)
  Sender: FDA-Public Use
  Company Number: B0633526A

PATIENT
  Sex: Female

DRUGS (1)
  1. CLAMOXYL [Suspect]
     Indication: URINARY TRACT INFECTION
     Dosage: 1UNIT SINGLE DOSE
     Route: 048
     Dates: start: 20091106, end: 20091106

REACTIONS (9)
  - ANGIOEDEMA [None]
  - COUGH [None]
  - ERYTHEMA [None]
  - LOSS OF CONSCIOUSNESS [None]
  - OEDEMA [None]
  - PRESYNCOPE [None]
  - PRURITUS [None]
  - URTICARIA [None]
  - VISION BLURRED [None]
